FAERS Safety Report 6760370-6 (Version None)
Quarter: 2010Q2

REPORT INFORMATION
  Report Type: 
  Country: None (occurrence: None)
  Receive Date: 20100528
  Receipt Date: 20081120
  Transmission Date: 20101027
  Serious: No
  Sender: FDA-Public Use
  Company Number: 2008-00139

PATIENT
  Sex: Male

DRUGS (1)
  1. ZICAM PRODUCT [Suspect]

REACTIONS (2)
  - AGEUSIA [None]
  - ANOSMIA [None]
